FAERS Safety Report 4891570-8 (Version None)
Quarter: 2006Q1

REPORT INFORMATION
  Report Type: 
  Country: None (occurrence: None)
  Receive Date: 20060125
  Receipt Date: 20060118
  Transmission Date: 20060701
  Serious: Yes (Other)
  Sender: FDA-Public Use
  Company Number: JP-MERCK-0601USA02575

PATIENT
  Age: 68 Year
  Sex: Male
  Weight: 71 kg

DRUGS (1)
  1. CLINORIL [Suspect]
     Indication: PAIN
     Route: 048
     Dates: start: 20050201

REACTIONS (4)
  - ACIDOSIS [None]
  - HYPERKALAEMIA [None]
  - ILEAL ULCER PERFORATION [None]
  - RENAL IMPAIRMENT [None]
